FAERS Safety Report 13464556 (Version 1)
Quarter: 2017Q2

REPORT INFORMATION
  Report Type: Spontaneous
  Country: US (occurrence: US)
  Receive Date: 20170420
  Receipt Date: 20170420
  Transmission Date: 20170830
  Serious: Yes (Other)
  Sender: FDA-Public Use
  Company Number: US-ROCHE-724585

PATIENT
  Age: 17 Year
  Sex: Male
  Weight: 79.4 kg

DRUGS (1)
  1. ACCUTANE [Suspect]
     Active Substance: ISOTRETINOIN
     Indication: ACNE
     Dosage: ISOTRETINOIN OFF
     Route: 065
     Dates: start: 200001, end: 20000814

REACTIONS (8)
  - Back pain [Unknown]
  - Blood cholesterol increased [Unknown]
  - Crohn^s disease [Recovering/Resolving]
  - Abdominal pain [Recovered/Resolved]
  - Rectal haemorrhage [Unknown]
  - Inflammatory bowel disease [Unknown]
  - Nausea [Unknown]
  - Lip dry [Recovering/Resolving]

NARRATIVE: CASE EVENT DATE: 200003
